FAERS Safety Report 18508644 (Version 3)
Quarter: 2021Q1

REPORT INFORMATION
  Report Type: Spontaneous
  Country: JP (occurrence: JP)
  Receive Date: 20201117
  Receipt Date: 20210120
  Transmission Date: 20210419
  Serious: Yes (Hospitalization)
  Sender: FDA-Public Use
  Company Number: JP-ASTELLAS-2020JP016073

PATIENT
  Age: 10 Year
  Sex: Female
  Weight: 38 kg

DRUGS (23)
  1. SEISHOKU [Concomitant]
     Active Substance: SODIUM CHLORIDE
     Indication: HYPOMAGNESAEMIA
     Route: 041
  2. PROGRAF [Suspect]
     Active Substance: TACROLIMUS
     Route: 048
     Dates: start: 20201030, end: 20201031
  3. PROGRAF [Suspect]
     Active Substance: TACROLIMUS
     Dosage: 0.2 MG, TWICE DAILY
     Route: 048
     Dates: start: 20201027, end: 20201029
  4. PROGRAF [Suspect]
     Active Substance: TACROLIMUS
     Dosage: 0.8 MG, ONCE DAILY
     Route: 041
     Dates: start: 20201031, end: 20201116
  5. PROGRAF [Suspect]
     Active Substance: TACROLIMUS
     Route: 048
     Dates: start: 20201021, end: 20201022
  6. EPINASTINE HYDROCHLORIDE. [Concomitant]
     Active Substance: EPINASTINE HYDROCHLORIDE
     Indication: DERMATITIS ALLERGIC
     Dosage: 20 MG, ONCE DAILY, AFTER DINNER
     Route: 065
  7. PROGRAF [Suspect]
     Active Substance: TACROLIMUS
     Route: 048
     Dates: start: 20201027, end: 20201029
  8. PROGRAF [Suspect]
     Active Substance: TACROLIMUS
     Dosage: 0.4 MG, TWICE DAILY
     Route: 048
     Dates: start: 20201021, end: 20201022
  9. PROGRAF [Suspect]
     Active Substance: TACROLIMUS
     Dosage: 0.4 MG, TWICE DAILY
     Route: 048
     Dates: start: 20201030, end: 20201031
  10. BAKTAR [Concomitant]
     Active Substance: SULFAMETHOXAZOLE\TRIMETHOPRIM
     Indication: PROPHYLAXIS
     Dosage: 1 DF, TWICE DAILY, AFTER BREAKFAST AND DINNER
     Route: 065
  11. PROGRAF [Suspect]
     Active Substance: TACROLIMUS
     Dosage: 0.8 MG, ONCE DAILY
     Route: 041
     Dates: start: 20201022, end: 20201026
  12. ACELIO [Concomitant]
     Active Substance: ACETAMINOPHEN
     Indication: PAIN
     Route: 041
  13. LANDSEN [Concomitant]
     Active Substance: CLONAZEPAM
     Indication: RESTLESS LEGS SYNDROME
     Dosage: 0.5 MG, AT BEDTIME
     Route: 048
  14. PROGRAF [Suspect]
     Active Substance: TACROLIMUS
     Indication: PROPHYLAXIS AGAINST GRAFT VERSUS HOST DISEASE
     Route: 048
     Dates: start: 20201019, end: 20201021
  15. VICCLOX [ACICLOVIR] [Concomitant]
     Active Substance: ACYCLOVIR
     Indication: PROPHYLAXIS
     Dosage: 1 DF, TWICE DAILY, AFTER BREAKFAST AND DINNER
     Route: 065
  16. PROGRAF [Suspect]
     Active Substance: TACROLIMUS
     Indication: PROPHYLAXIS AGAINST GRAFT VERSUS HOST DISEASE
     Dosage: 0.8 MG, ONCE DAILY
     Route: 041
     Dates: start: 20200826, end: 20201019
  17. PROGRAF [Suspect]
     Active Substance: TACROLIMUS
     Indication: PROPHYLAXIS AGAINST GRAFT VERSUS HOST DISEASE
     Dosage: 0.2 MG, TWICE DAILY
     Route: 048
     Dates: start: 20201019, end: 20201021
  18. SEISHOKU [Concomitant]
     Active Substance: SODIUM CHLORIDE
     Indication: PROPHYLAXIS AGAINST GRAFT VERSUS HOST DISEASE
     Route: 041
     Dates: start: 20200826, end: 20201116
  19. MAGNESIUM SULFATE. [Concomitant]
     Active Substance: MAGNESIUM SULFATE
     Indication: HYPOMAGNESAEMIA
     Route: 041
  20. AZUNOL GARGLE LIQUID [Concomitant]
     Indication: THERAPEUTIC GARGLE
     Dosage: UNK UNK, AS NEEDED, SEVERAL TIMES A DAY
     Route: 065
  21. BESOFTEN [Concomitant]
     Active Substance: PENTOSAN POLYSULFATE SODIUM
     Indication: ASTEATOSIS
     Dosage: UNK UNK, THRICE DAILY, A ROUGH PLACE
     Route: 065
  22. PROGRAF [Suspect]
     Active Substance: TACROLIMUS
     Route: 048
  23. FUCIDIN LEO [Concomitant]
     Active Substance: FUSIDATE SODIUM
     Indication: SKIN INFECTION
     Dosage: UNK UNK, TWICE DAILY
     Route: 065

REACTIONS (1)
  - Drug level decreased [Recovered/Resolved]

NARRATIVE: CASE EVENT DATE: 20201021
